FAERS Safety Report 21238498 (Version 4)
Quarter: 2023Q2

REPORT INFORMATION
  Report Type: Spontaneous
  Country: BR (occurrence: BR)
  Receive Date: 20220822
  Receipt Date: 20230620
  Transmission Date: 20230722
  Serious: Yes (Other)
  Sender: FDA-Public Use
  Company Number: BR-GLAXOSMITHKLINE-BR2018GSK116597

PATIENT

DRUGS (7)
  1. BENLYSTA [Suspect]
     Active Substance: BELIMUMAB
     Indication: Systemic lupus erythematosus
     Dosage: 600 MG, MO (6X120 MG/MONTHLY)
     Route: 042
     Dates: start: 20180121
  2. BENLYSTA [Suspect]
     Active Substance: BELIMUMAB
     Dosage: UNK(560 (DAILY DOSE))
     Route: 042
     Dates: start: 20190711
  3. BENLYSTA [Suspect]
     Active Substance: BELIMUMAB
     Dosage: 560 MG, MONTHLY INFUSIONS
     Route: 042
     Dates: start: 20190813
  4. BENLYSTA [Suspect]
     Active Substance: BELIMUMAB
     Dosage: UNK
     Dates: start: 20180121
  5. AZATHIOPRINE [Suspect]
     Active Substance: AZATHIOPRINE
     Indication: Systemic lupus erythematosus
     Dosage: UNK
  6. PREDNISONE [Suspect]
     Active Substance: PREDNISONE
     Indication: Systemic lupus erythematosus
     Dosage: 5 MG
  7. VENLAFAXINE HYDROCHLORIDE [Suspect]
     Active Substance: VENLAFAXINE HYDROCHLORIDE
     Indication: Product used for unknown indication
     Dosage: 75 MG

REACTIONS (12)
  - Immunodeficiency [Unknown]
  - Urinary tract infection [Unknown]
  - Weight fluctuation [Unknown]
  - Influenza [Recovered/Resolved]
  - Sinusitis [Recovered/Resolved]
  - Illness [Unknown]
  - Allergic cough [Recovered/Resolved]
  - Cough [Unknown]
  - Product dose omission issue [Not Recovered/Not Resolved]
  - Inappropriate schedule of product administration [Unknown]
  - Product availability issue [Unknown]
  - Decreased immune responsiveness [Unknown]

NARRATIVE: CASE EVENT DATE: 20220215
